FAERS Safety Report 20438846 (Version 1)
Quarter: 2022Q1

REPORT INFORMATION
  Report Type: Spontaneous
  Country: US (occurrence: US)
  Receive Date: 20220207
  Receipt Date: 20220207
  Transmission Date: 20220423
  Serious: No
  Sender: FDA-Public Use
  Company Number: US-PFIZER INC-202101559186

PATIENT
  Age: 50 Year
  Sex: Female

DRUGS (1)
  1. XELJANZ XR [Suspect]
     Active Substance: TOFACITINIB CITRATE
     Indication: Rheumatoid arthritis
     Dosage: 11 MG, 1X/DAY
     Route: 048
     Dates: start: 2020

REACTIONS (8)
  - Intentional product misuse [Unknown]
  - Product dose omission in error [Unknown]
  - COVID-19 [Unknown]
  - Pain [Unknown]
  - Inflammation [Unknown]
  - Condition aggravated [Unknown]
  - Discouragement [Unknown]
  - Depression [Unknown]
